FAERS Safety Report 4786643-4 (Version None)
Quarter: 2005Q4

REPORT INFORMATION
  Report Type: 
  Country: None (occurrence: None)
  Receive Date: 20051003
  Receipt Date: 20051003
  Transmission Date: 20060501
  Serious: Yes (Hospitalization)
  Sender: FDA-Public Use
  Company Number: None

PATIENT
  Sex: Male
  Weight: 80 kg

DRUGS (5)
  1. BIAXIN XL [Suspect]
     Indication: PNEUMONIA
     Dosage: 1G  TID PO
     Route: 048
     Dates: start: 20050220, end: 20050221
  2. TYLENOL ES [Concomitant]
  3. REGLAN [Concomitant]
  4. HYCOTUSS [Concomitant]
  5. ALBUTEROL [Concomitant]

REACTIONS (16)
  - ABDOMINAL PAIN [None]
  - BODY TEMPERATURE INCREASED [None]
  - COUGH [None]
  - DEHYDRATION [None]
  - DYSPNOEA [None]
  - FATIGUE [None]
  - FLATULENCE [None]
  - HEADACHE [None]
  - HEPATITIS CHOLESTATIC [None]
  - HYPOKALAEMIA [None]
  - INCORRECT DOSE ADMINISTERED [None]
  - MYALGIA [None]
  - NAUSEA [None]
  - ORAL INTAKE REDUCED [None]
  - OVERDOSE [None]
  - VOMITING [None]
